FAERS Safety Report 14723559 (Version 1)
Quarter: 2018Q2

REPORT INFORMATION
  Report Type: Report from Study
  Country: US (occurrence: US)
  Receive Date: 20180405
  Receipt Date: 20180405
  Transmission Date: 20180711
  Serious: Yes (Death, Hospitalization, Other)
  Sender: FDA-Public Use
  Company Number: US-JNJFOC-20180102364

PATIENT
  Age: 84 Year
  Sex: Male

DRUGS (33)
  1. IMBRUVICA [Suspect]
     Active Substance: IBRUTINIB
     Indication: CHRONIC LYMPHOCYTIC LEUKAEMIA
     Route: 048
     Dates: start: 20170130, end: 201711
  2. ASPIRIN. [Suspect]
     Active Substance: ASPIRIN
     Indication: PRODUCT USED FOR UNKNOWN INDICATION
     Route: 065
  3. LIPITOR [Concomitant]
     Active Substance: ATORVASTATIN CALCIUM
  4. COZAAR [Concomitant]
     Active Substance: LOSARTAN POTASSIUM
  5. VITAMIN D3 [Concomitant]
     Active Substance: CHOLECALCIFEROL
  6. AMLODIPINE [Concomitant]
     Active Substance: AMLODIPINE BESYLATE
  7. LORATADINE. [Concomitant]
     Active Substance: LORATADINE
  8. BIFIDOBACTERIUM LACTIS [Concomitant]
     Active Substance: BIFIDOBACTERIUM ANIMALIS LACTIS
  9. PREDNISONE. [Concomitant]
     Active Substance: PREDNISONE
     Dates: start: 20180214, end: 20180215
  10. CORDARONE [Concomitant]
     Active Substance: AMIODARONE HYDROCHLORIDE
  11. DUONEB [Concomitant]
     Active Substance: ALBUTEROL SULFATE\IPRATROPIUM BROMIDE
     Dosage: EVERY 4 HOURS
  12. AMIODARONE [Concomitant]
     Active Substance: AMIODARONE
  13. MULTIVITAMINS [Concomitant]
     Active Substance: VITAMINS
     Route: 048
  14. AUGMENTIN [Concomitant]
     Active Substance: AMOXICILLIN\CLAVULANATE POTASSIUM
     Dosage: 875MG-125MG
  15. LACTOBACILLUS ACIDOPHILUS [Concomitant]
     Active Substance: LACTOBACILLUS ACIDOPHILUS
  16. LEVOTHYROXINE. [Concomitant]
     Active Substance: LEVOTHYROXINE
  17. RANEXA [Concomitant]
     Active Substance: RANOLAZINE
  18. LOPRESSOR [Concomitant]
     Active Substance: METOPROLOL TARTRATE
  19. SYMBICORT [Concomitant]
     Active Substance: BUDESONIDE\FORMOTEROL FUMARATE DIHYDRATE
     Dosage: 2 PUFFS TWICE DAILY
  20. IMBRUVICA [Suspect]
     Active Substance: IBRUTINIB
     Indication: CHRONIC LYMPHOCYTIC LEUKAEMIA
     Route: 048
     Dates: start: 20161014
  21. IMBRUVICA [Suspect]
     Active Substance: IBRUTINIB
     Indication: CHRONIC LYMPHOCYTIC LEUKAEMIA
     Route: 048
     Dates: start: 20161019, end: 201712
  22. VENTOLIN HFA [Concomitant]
     Active Substance: ALBUTEROL SULFATE
  23. HUMIBID LA [Concomitant]
     Active Substance: GUAIFENESIN
     Dosage: 1200 MG, BID
  24. PREDNISONE. [Concomitant]
     Active Substance: PREDNISONE
     Dates: start: 20180219, end: 20180221
  25. ZOVIRAX [Concomitant]
     Active Substance: ACYCLOVIR
  26. AMARYL [Concomitant]
     Active Substance: GLIMEPIRIDE
  27. ALDACTONE [Concomitant]
     Active Substance: SPIRONOLACTONE
  28. TYLENOL [Concomitant]
     Active Substance: ACETAMINOPHEN
     Dosage: 650 MG, BEDTIME
  29. CEFTIN [Concomitant]
     Active Substance: CEFUROXIME AXETIL
     Dates: start: 20180220
  30. CLARITIN [Concomitant]
     Active Substance: LORATADINE
  31. JANUVIA [Concomitant]
     Active Substance: SITAGLIPTIN PHOSPHATE
  32. PREDNISONE. [Concomitant]
     Active Substance: PREDNISONE
     Dates: start: 20180216, end: 20180218
  33. LEXAPRO [Concomitant]
     Active Substance: ESCITALOPRAM OXALATE

REACTIONS (15)
  - Pneumonia [Recovered/Resolved]
  - Medical device site erythema [Unknown]
  - Pruritus [Unknown]
  - Carotid endarterectomy [Unknown]
  - Chronic obstructive pulmonary disease [Unknown]
  - Respiratory failure [Unknown]
  - Malignant pleural effusion [Unknown]
  - Cardiac failure acute [Unknown]
  - Stomatitis [Unknown]
  - Acute myocardial infarction [Fatal]
  - Disease progression [Unknown]
  - Atrial fibrillation [Recovering/Resolving]
  - Bronchitis [Unknown]
  - Septic shock [Unknown]
  - Haematochezia [Unknown]

NARRATIVE: CASE EVENT DATE: 20170727
